FAERS Safety Report 17261658 (Version 1)
Quarter: 2020Q1

REPORT INFORMATION
  Report Type: Spontaneous
  Country: NZ (occurrence: NZ)
  Receive Date: 20200113
  Receipt Date: 20200113
  Transmission Date: 20200409
  Serious: Yes (Other)
  Sender: FDA-Public Use
  Company Number: NZ-TEVA-2020-NZ-1168707

PATIENT
  Sex: Female

DRUGS (4)
  1. OMEPRAZOLE. [Suspect]
     Active Substance: OMEPRAZOLE
  2. ZISTA [Suspect]
     Active Substance: CETIRIZINE HYDROCHLORIDE
  3. ARROW-TRAMADOL [Suspect]
     Active Substance: TRAMADOL HYDROCHLORIDE
     Dosage: 6-7 MONTHS
  4. METROCLOPRAMIDE ACTAVIS 10 [Suspect]
     Active Substance: METOCLOPRAMIDE HYDROCHLORIDE
     Dosage: ON AND OFF

REACTIONS (8)
  - Hypoaesthesia oral [Unknown]
  - Hypersensitivity [Unknown]
  - Pruritus [Unknown]
  - Lip swelling [Unknown]
  - Eczema [Unknown]
  - Swollen tongue [Unknown]
  - Mouth swelling [Unknown]
  - Eye pruritus [Unknown]

NARRATIVE: CASE EVENT DATE: 201907
